FAERS Safety Report 19611130 (Version 1)
Quarter: 2021Q3

REPORT INFORMATION
  Report Type: Spontaneous
  Country: ES (occurrence: ES)
  Receive Date: 20210726
  Receipt Date: 20210726
  Transmission Date: 20211014
  Serious: Yes (Life-Threatening, Hospitalization)
  Sender: FDA-Public Use
  Company Number: ES-PFIZER INC-2021879064

PATIENT
  Age: 46 Year
  Sex: Female

DRUGS (3)
  1. LITHIUM CARBONATE. [Suspect]
     Active Substance: LITHIUM CARBONATE
     Dosage: 7.6 G, SINGLE
     Route: 048
     Dates: start: 20210616, end: 20210616
  2. ORFIDAL [Suspect]
     Active Substance: LORAZEPAM
     Dosage: 50 MG, SINGLE
     Route: 048
     Dates: start: 20210616, end: 20210616
  3. QUETIAPINE. [Suspect]
     Active Substance: QUETIAPINE
     Dosage: 10.95 G, SINGLE
     Route: 048
     Dates: start: 20210616, end: 20210616

REACTIONS (3)
  - Intentional overdose [Recovered/Resolved]
  - Depressed level of consciousness [Recovered/Resolved]
  - Suicide attempt [Recovered/Resolved]

NARRATIVE: CASE EVENT DATE: 20210616
